FAERS Safety Report 5076041-0 (Version None)
Quarter: 2006Q3

REPORT INFORMATION
  Report Type: 
  Country: None (occurrence: None)
  Receive Date: 20060804
  Receipt Date: 20060726
  Transmission Date: 20061208
  Serious: Yes (Hospitalization, Other)
  Sender: FDA-Public Use
  Company Number: 2006-07-2104

PATIENT
  Age: 68 Year
  Sex: Male
  Weight: 55 kg

DRUGS (2)
  1. VIRAFERONPEG [Suspect]
     Indication: HEPATITIS C
     Dosage: QWK, SUBCUTANEOUS
     Route: 058
     Dates: start: 20050811
  2. REBETOL [Suspect]
     Indication: HEPATITIS C
     Dosage: QD; ORAL
     Route: 048
     Dates: start: 20050811

REACTIONS (4)
  - HEPATIC NEOPLASM MALIGNANT [None]
  - PRURITUS GENERALISED [None]
  - SARCOMA [None]
  - WEIGHT DECREASED [None]
